FAERS Safety Report 5313137-X (Version None)
Quarter: 2007Q2

REPORT INFORMATION
  Report Type: 
  Country: None (occurrence: None)
  Receive Date: 20070424
  Receipt Date: 20070409
  Transmission Date: 20071010
  Serious: Yes (Hospitalization)
  Sender: FDA-Public Use
  Company Number: 07-000788

PATIENT
  Age: 31 Year
  Sex: Female
  Weight: 56.7 kg

DRUGS (3)
  1. LOESTRIN 24 FE [Suspect]
     Indication: CONTRACEPTION
     Dosage: 20/1000UG,QD,ORAL
     Route: 048
     Dates: start: 20060801, end: 20070329
  2. AMITRIPTYLINE HCL [Concomitant]
  3. KLONOPIN [Concomitant]

REACTIONS (12)
  - CHOLELITHIASIS [None]
  - CONSTIPATION [None]
  - DIARRHOEA [None]
  - DYSGEUSIA [None]
  - GALLBLADDER DISORDER [None]
  - MENORRHAGIA [None]
  - NAUSEA [None]
  - PANCREATIC DUCT DILATATION [None]
  - PANCREATIC ENLARGEMENT [None]
  - PANCREATITIS [None]
  - SINUSITIS [None]
  - VOMITING [None]
